FAERS Safety Report 22646082 (Version 1)
Quarter: 2023Q2

REPORT INFORMATION
  Report Type: Other
  Country: None (occurrence: US)
  Receive Date: 20230627
  Receipt Date: 20230627
  Transmission Date: 20230722
  Serious: Yes (Other)
  Sender: FDA-Public Use
  Company Number: US-Fagron Sterile Services-2143160

PATIENT

DRUGS (1)
  1. EPINEPHRINE\LIDOCAINE\TETRACAINE [Suspect]
     Active Substance: EPINEPHRINE\LIDOCAINE\TETRACAINE

REACTIONS (1)
  - Drug ineffective [None]
